FAERS Safety Report 4521605-3 (Version None)
Quarter: 2004Q4

REPORT INFORMATION
  Report Type: 
  Country: None (occurrence: None)
  Receive Date: 20041209
  Receipt Date: 20041126
  Transmission Date: 20050328
  Serious: Yes (Other)
  Sender: FDA-Public Use
  Company Number: GB-JNJFOC-20041106234

PATIENT
  Sex: Female
  Weight: 51 kg

DRUGS (9)
  1. REMICADE [Suspect]
     Indication: RHEUMATOID ARTHRITIS
     Route: 042
  2. METHOTREXATE [Concomitant]
  3. FOLIC ACID [Concomitant]
  4. PREDNISOLONE [Concomitant]
  5. LANSOPRAZOLE [Concomitant]
  6. ADCAL [Concomitant]
  7. NABUMETONE [Concomitant]
  8. FERROUS SULFATE TAB [Concomitant]
  9. ALENDRONATE SODIUM [Concomitant]

REACTIONS (1)
  - BASAL CELL CARCINOMA [None]
